FAERS Safety Report 17534062 (Version 3)
Quarter: 2022Q2

REPORT INFORMATION
  Report Type: Report from Study
  Country: US (occurrence: US)
  Receive Date: 20200312
  Receipt Date: 20220513
  Transmission Date: 20220721
  Serious: Yes (Hospitalization, Other)
  Sender: FDA-Public Use
  Company Number: US-HARMONY BIOSCIENCES-2020HMY00205

PATIENT
  Age: 43 Year
  Sex: Male
  Weight: 87.982 kg

DRUGS (10)
  1. WAKIX [Suspect]
     Active Substance: PITOLISANT HYDROCHLORIDE
     Indication: Narcolepsy
     Dosage: 35.6 MG, 1X/DAY UPON WAKING
     Route: 048
     Dates: start: 2019, end: 20200202
  2. WAKIX [Suspect]
     Active Substance: PITOLISANT HYDROCHLORIDE
     Dosage: 35.6 MG, 1X/DAY UPON WAKING
     Route: 048
     Dates: start: 202002
  3. XYREM [Suspect]
     Active Substance: SODIUM OXYBATE
  4. EUFLEXXA [Concomitant]
     Active Substance: HYALURONATE SODIUM
     Route: 014
  5. NEXIUM [Concomitant]
     Active Substance: ESOMEPRAZOLE MAGNESIUM
  6. VYVANSE [Concomitant]
     Active Substance: LISDEXAMFETAMINE DIMESYLATE
  7. LISINOPRIL [Concomitant]
     Active Substance: LISINOPRIL
     Dosage: LOW DOSE
  8. VITAMINS [Concomitant]
     Active Substance: VITAMINS
  9. ALL-IN-ONE FOR HEALTHY JOINTS (CHONDROITIN; TURMERIC; MSM) [Concomitant]
  10. FISH OIL [Concomitant]
     Active Substance: FISH OIL

REACTIONS (9)
  - Viral infection [Recovered/Resolved]
  - Dyspnoea [Recovered/Resolved]
  - Malaise [Recovered/Resolved]
  - Pyrexia [Recovered/Resolved]
  - Asthenia [Recovered/Resolved]
  - Product dose omission issue [Recovered/Resolved]
  - Thyroid function test abnormal [Unknown]
  - Blood potassium decreased [Unknown]
  - Nausea [Unknown]

NARRATIVE: CASE EVENT DATE: 20200201
